FAERS Safety Report 23378324 (Version 1)
Quarter: 2024Q1

REPORT INFORMATION
  Report Type: Spontaneous
  Country: FR (occurrence: FR)
  Receive Date: 20240108
  Receipt Date: 20240108
  Transmission Date: 20240410
  Serious: Yes (Other)
  Sender: FDA-Public Use
  Company Number: FR-MEITHEAL-2023MPLIT00211

PATIENT
  Age: 34 Year
  Sex: Female

DRUGS (8)
  1. NEOSTIGMINE [Suspect]
     Active Substance: NEOSTIGMINE
     Indication: Post lumbar puncture syndrome
     Route: 042
  2. ATROPINE [Suspect]
     Active Substance: ATROPINE\ATROPINE SULFATE
     Indication: Post lumbar puncture syndrome
     Route: 042
  3. ACETAMINOPHEN [Concomitant]
     Active Substance: ACETAMINOPHEN
     Indication: Neck pain
     Route: 048
  4. ACETAMINOPHEN [Concomitant]
     Active Substance: ACETAMINOPHEN
  5. NEFOPAM [Concomitant]
     Active Substance: NEFOPAM
     Indication: Neck pain
     Route: 048
  6. NEFOPAM [Concomitant]
     Active Substance: NEFOPAM
  7. TRAMADOL [Concomitant]
     Active Substance: TRAMADOL\TRAMADOL HYDROCHLORIDE
     Indication: Neck pain
     Route: 048
  8. TRAMADOL [Concomitant]
     Active Substance: TRAMADOL\TRAMADOL HYDROCHLORIDE

REACTIONS (1)
  - Reversible cerebral vasoconstriction syndrome [Recovered/Resolved]
